FAERS Safety Report 5424963-0 (Version None)
Quarter: 2007Q3

REPORT INFORMATION
  Report Type: 
  Country: None (occurrence: None)
  Receive Date: 20070824
  Receipt Date: 20070820
  Transmission Date: 20080115
  Serious: Yes (Other)
  Sender: FDA-Public Use
  Company Number: B0446764A

PATIENT
  Age: 43 Year
  Sex: Female
  Weight: 75 kg

DRUGS (5)
  1. BUPROPION HCL [Suspect]
     Indication: DEPRESSION
     Dosage: 300MG PER DAY
     Route: 048
     Dates: start: 20060304, end: 20061114
  2. LOXONIN [Suspect]
     Indication: HEADACHE
     Dosage: 60MG TWICE PER DAY
     Route: 048
     Dates: start: 20060303
  3. LOXONIN [Suspect]
     Dosage: 60MG PER DAY
     Route: 048
     Dates: start: 20060303
  4. SELBEX [Suspect]
     Indication: STOMACH DISCOMFORT
     Dosage: 50MG PER DAY
     Route: 048
  5. ZOLPIDEM [Suspect]
     Indication: INSOMNIA
     Dosage: 5MG PER DAY
     Route: 048

REACTIONS (3)
  - ABDOMINAL PAIN [None]
  - ABORTION SPONTANEOUS [None]
  - DRUG EXPOSURE DURING PREGNANCY [None]
